FAERS Safety Report 8802991 (Version 1)
Quarter: 2012Q4

REPORT INFORMATION
  Report Type: 
  Country: JP (occurrence: JP)
  Receive Date: 20120924
  Receipt Date: 20120924
  Transmission Date: 20130627
  Serious: Yes (Death, Other)
  Sender: FDA-Public Use
  Company Number: JP-PFIZER INC-2012232699

PATIENT
  Age: 41 Year
  Sex: Female
  Weight: 47 kg

DRUGS (3)
  1. METHYLPREDNISOLONE SODIUM SUCCINATE [Suspect]
     Dosage: 10 mg/kg, daily, every two weeks
     Dates: start: 1998
  2. PREDNISOLONE [Suspect]
     Dosage: 20 mg, daily
     Route: 048
  3. PREDNISOLONE [Suspect]
     Dosage: 13 mg, daily
     Route: 048

REACTIONS (1)
  - Pneumatosis intestinalis [Fatal]
